FAERS Safety Report 9163399 (Version 3)
Quarter: 2013Q3

REPORT INFORMATION
  Report Type: Spontaneous
  Country: DE (occurrence: DE)
  Receive Date: 20130314
  Receipt Date: 20130815
  Transmission Date: 20140515
  Serious: Yes (Other)
  Sender: FDA-Public Use
  Company Number: DE-ALLERGAN-1303322US

PATIENT
  Age: 70 Year
  Sex: Male

DRUGS (1)
  1. OZURDEX [Suspect]
     Indication: UVEITIS
     Dosage: 0.7 MG, SINGLE
     Route: 031
     Dates: end: 201302

REACTIONS (5)
  - Corneal opacity [Not Recovered/Not Resolved]
  - Visual impairment [Not Recovered/Not Resolved]
  - Device dislocation [Not Recovered/Not Resolved]
  - Corneal oedema [Not Recovered/Not Resolved]
  - Intraocular pressure increased [Not Recovered/Not Resolved]
